FAERS Safety Report 8301631-9 (Version None)
Quarter: 2012Q2

REPORT INFORMATION
  Report Type: 
  Country: None (occurrence: None)
  Receive Date: 20120420
  Receipt Date: 20120410
  Transmission Date: 20120825
  Serious: Yes (Hospitalization)
  Sender: FDA-Public Use
  Company Number: CA-ROCHE-1051921

PATIENT
  Sex: Female
  Weight: 90.8 kg

DRUGS (7)
  1. VEMURAFENIB [Suspect]
     Indication: METASTATIC MALIGNANT MELANOMA
     Route: 048
     Dates: start: 20120309
  2. CODEINE [Concomitant]
     Dates: start: 20120309
  3. TYLENOL (CAPLET) [Concomitant]
     Indication: PAIN
     Route: 048
  4. CODEINE [Concomitant]
     Dates: start: 20120409
  5. ASPIRIN [Concomitant]
  6. ASPIRIN [Concomitant]
     Indication: ANTICOAGULANT THERAPY
     Route: 048
  7. AMLODIPINE [Concomitant]

REACTIONS (10)
  - VERTIGO [None]
  - RASH [None]
  - DYSPNOEA [None]
  - COUGH [None]
  - DIZZINESS [None]
  - SKIN ULCER [None]
  - HYPERTENSION [None]
  - DEHYDRATION [None]
  - LOWER RESPIRATORY TRACT INFECTION [None]
  - BACK PAIN [None]
